FAERS Safety Report 8900560 (Version 2)
Quarter: 2013Q1

REPORT INFORMATION
  Report Type: Spontaneous
  Country: US (occurrence: US)
  Receive Date: 20121109
  Receipt Date: 20130130
  Transmission Date: 20140127
  Serious: Yes (Hospitalization, Other)
  Sender: FDA-Public Use
  Company Number: US-ELI_LILLY_AND_COMPANY-US201210003123

PATIENT
  Age: 71 Year
  Sex: Female

DRUGS (5)
  1. FORTEO [Suspect]
     Indication: OSTEOPOROSIS
     Dosage: 20 UG, QD
     Dates: start: 20121004
  2. DIOVAN [Concomitant]
  3. NEXIUM [Concomitant]
  4. CRESTOR [Concomitant]
     Dosage: UNK, QOD
  5. CALCIUM [Concomitant]

REACTIONS (10)
  - Blood pressure systolic increased [Unknown]
  - Blood pressure decreased [Unknown]
  - Chest pain [Recovered/Resolved]
  - Injection site erythema [Unknown]
  - Product taste abnormal [Unknown]
  - Nausea [Unknown]
  - Headache [Unknown]
  - Memory impairment [Unknown]
  - Confusional state [Unknown]
  - Osteogenesis imperfecta [Unknown]
